FAERS Safety Report 18335240 (Version 1)
Quarter: 2020Q4

REPORT INFORMATION
  Report Type: Spontaneous
  Country: BR (occurrence: BR)
  Receive Date: 20201001
  Receipt Date: 20201001
  Transmission Date: 20210113
  Serious: Yes (Other)
  Sender: FDA-Public Use
  Company Number: BR-GLAXOSMITHKLINE-BR2019AMR140334

PATIENT
  Sex: Female
  Weight: 57 kg

DRUGS (2)
  1. NUCALA [Suspect]
     Active Substance: MEPOLIZUMAB
     Indication: ASTHMA
     Dosage: 100 MG, UNK
     Dates: start: 20190606, end: 201912
  2. PIEMONTE [Suspect]
     Active Substance: MONTELUKAST SODIUM
     Indication: PRODUCT USED FOR UNKNOWN INDICATION
     Dosage: UNK

REACTIONS (7)
  - Dyspnoea [Unknown]
  - Headache [Recovered/Resolved]
  - COVID-19 [Unknown]
  - Quarantine [Unknown]
  - Pneumonia [Recovering/Resolving]
  - Fatigue [Recovered/Resolved]
  - Somnolence [Unknown]
